FAERS Safety Report 6337596-9 (Version None)
Quarter: 2009Q3

REPORT INFORMATION
  Report Type: 
  Country: None (occurrence: None)
  Receive Date: 20090902
  Receipt Date: 20090826
  Transmission Date: 20100115
  Serious: Yes (Hospitalization)
  Sender: FDA-Public Use
  Company Number: DE-ROCHE-639825

PATIENT
  Sex: Male
  Weight: 70 kg

DRUGS (6)
  1. CAPECITABINE [Suspect]
     Dosage: FORM: PILL
     Route: 048
     Dates: start: 20090608, end: 20090622
  2. CAPECITABINE [Suspect]
     Route: 048
     Dates: start: 20090723
  3. BEVACIZUMAB [Suspect]
     Dosage: FREQ: D1,15, 29.  THERAPY ON 22 JUNE 09 (DAY 15) WAS OMITTED, FORM INFUSION
     Route: 042
     Dates: start: 20090608, end: 20090622
  4. BEVACIZUMAB [Suspect]
     Route: 042
     Dates: start: 20090730
  5. OXALIPLATIN [Suspect]
     Dosage: FREQ: D1,8,22,29, DATE OF LAST DOSE PRIOR TO SAE: 15 JUNE 09, FORM: INFUSION
     Route: 042
     Dates: start: 20090608, end: 20090615
  6. OXALIPLATIN [Suspect]
     Route: 042
     Dates: start: 20090723

REACTIONS (1)
  - ANAL ABSCESS [None]
